FAERS Safety Report 4952646-X (Version None)
Quarter: 2006Q1

REPORT INFORMATION
  Report Type: 
  Country: None (occurrence: None)
  Receive Date: 20060320
  Receipt Date: 20040730
  Transmission Date: 20060701
  Serious: Yes (Death, Hospitalization)
  Sender: FDA-Public Use
  Company Number: HQWYE942929APR03

PATIENT
  Age: 77 Year
  Sex: Male
  Weight: 74 kg

DRUGS (8)
  1. MYLOTARG [Suspect]
     Indication: ACUTE MYELOID LEUKAEMIA
     Dosage: 16 MG 1X PER 1 DAY, INTRAVENOUS
     Route: 042
     Dates: start: 20030418, end: 20030418
  2. PROTONIX [Concomitant]
  3. SPORANOX [Concomitant]
  4. MONOPRIL [Concomitant]
  5. COMBIVENT [Concomitant]
  6. LASIX [Concomitant]
  7. LEVAQUIN [Concomitant]
  8. FLAGYL [Concomitant]

REACTIONS (10)
  - ABDOMINAL PAIN UPPER [None]
  - CONFUSIONAL STATE [None]
  - CRYPTOGENIC ORGANIZING PNEUMONIA [None]
  - DISEASE PROGRESSION [None]
  - HICCUPS [None]
  - INSOMNIA [None]
  - OBLITERATIVE BRONCHIOLITIS [None]
  - PANCYTOPENIA [None]
  - PLEURAL EFFUSION [None]
  - PNEUMONIA FUNGAL [None]
